FAERS Safety Report 5330510-4 (Version None)
Quarter: 2007Q2

REPORT INFORMATION
  Report Type: 
  Country: None (occurrence: None)
  Receive Date: 20070521
  Receipt Date: 20070514
  Transmission Date: 20071010
  Serious: Yes (Hospitalization)
  Sender: FDA-Public Use
  Company Number: US-GENENTECH-241509

PATIENT
  Sex: Female
  Weight: 66.485 kg

DRUGS (12)
  1. AVASTIN [Suspect]
     Indication: BREAST CANCER
     Dosage: 630 UNK, Q2W
     Route: 042
     Dates: start: 20061213
  2. TAXOTERE [Suspect]
     Indication: BREAST CANCER
     Dosage: 86 UNK, 1/WEEK
     Route: 042
     Dates: start: 20071213
  3. K-DUR 10 [Concomitant]
     Indication: DRUG USE FOR UNKNOWN INDICATION
  4. UNSPECIFIED MEDICATION [Concomitant]
     Indication: DRUG USE FOR UNKNOWN INDICATION
  5. NEXIUM [Concomitant]
     Indication: DRUG USE FOR UNKNOWN INDICATION
  6. LEUKINE [Concomitant]
     Indication: DRUG USE FOR UNKNOWN INDICATION
     Dosage: 500 MG, 1/WEEK
  7. PROCRIT [Concomitant]
     Indication: DRUG USE FOR UNKNOWN INDICATION
     Dosage: 40000 UNIT, 1/WEEK
  8. GLUCOPHAGE [Concomitant]
     Indication: DRUG USE FOR UNKNOWN INDICATION
  9. ACTOS [Concomitant]
     Indication: DRUG USE FOR UNKNOWN INDICATION
  10. SYNTHROID [Concomitant]
     Indication: DRUG USE FOR UNKNOWN INDICATION
  11. UNSPECIFIED MEDICATION [Concomitant]
  12. ASPIRIN [Concomitant]
     Indication: DRUG USE FOR UNKNOWN INDICATION

REACTIONS (2)
  - BACK PAIN [None]
  - MUSCULAR WEAKNESS [None]
